FAERS Safety Report 5117861-3 (Version None)
Quarter: 2006Q3

REPORT INFORMATION
  Report Type: 
  Country: None (occurrence: None)
  Receive Date: 20060926
  Receipt Date: 20060913
  Transmission Date: 20061208
  Serious: Yes (Hospitalization)
  Sender: FDA-Public Use
  Company Number: 2006111093

PATIENT
  Age: 41 Year
  Sex: Female
  Weight: 49 kg

DRUGS (12)
  1. SUTENT [Suspect]
     Indication: RENAL CELL CARCINOMA STAGE UNSPECIFIED
     Dosage: SEE IMAGE
     Route: 048
     Dates: start: 20060515
  2. SUTENT [Suspect]
     Indication: RENAL CELL CARCINOMA STAGE UNSPECIFIED
     Dosage: SEE IMAGE
     Route: 048
     Dates: start: 20060626
  3. PAMIDRONATE DISODIUM [Concomitant]
  4. OXYCODONE HCL [Concomitant]
  5. IBUPROFEN [Concomitant]
  6. CLONAZEPAM [Concomitant]
  7. IRON PREPARATIONS [Concomitant]
  8. GABAPENTIN [Concomitant]
  9. PARACETAMOL [Concomitant]
  10. PANTOPRAZOLE SODIUM [Concomitant]
  11. DOMPERIDONE [Concomitant]
  12. AMILORIDE HCL AND HYDROCHLOROTHIAZIDE [Concomitant]

REACTIONS (7)
  - ASTHENIA [None]
  - METASTASES TO BONE [None]
  - MUCOSAL INFLAMMATION [None]
  - POSTOPERATIVE WOUND INFECTION [None]
  - PURULENT DISCHARGE [None]
  - PYREXIA [None]
  - SPINAL CORD COMPRESSION [None]
